FAERS Safety Report 16630799 (Version 2)
Quarter: 2019Q3

REPORT INFORMATION
  Report Type: Spontaneous
  Country: JP (occurrence: JP)
  Receive Date: 20190725
  Receipt Date: 20190903
  Transmission Date: 20191004
  Serious: Yes (Death, Other)
  Sender: FDA-Public Use
  Company Number: JP-BRISTOL-MYERS SQUIBB COMPANY-BMS-2019-072937

PATIENT
  Age: 79 Year
  Sex: Female

DRUGS (1)
  1. OPDIVO [Suspect]
     Active Substance: NIVOLUMAB
     Indication: NON-SMALL CELL LUNG CANCER RECURRENT
     Dosage: DOSE UNSPECIFIED (2019/2/28,3/28,4/25)
     Route: 041
     Dates: start: 20190228, end: 20190425

REACTIONS (6)
  - Malignant neoplasm progression [Fatal]
  - Malaise [Unknown]
  - Deep vein thrombosis [Unknown]
  - Cerebral infarction [Unknown]
  - Retinal artery occlusion [Unknown]
  - Pulmonary embolism [Unknown]

NARRATIVE: CASE EVENT DATE: 20190301
